FAERS Safety Report 6285527-2 (Version None)
Quarter: 2009Q3

REPORT INFORMATION
  Report Type: 
  Country: None (occurrence: None)
  Receive Date: 20090727
  Receipt Date: 20090720
  Transmission Date: 20100115
  Serious: Yes (Death, Hospitalization)
  Sender: FDA-Public Use
  Company Number: PHHY2009US25593

PATIENT
  Sex: Male
  Weight: 92.971 kg

DRUGS (13)
  1. CLOZARIL [Suspect]
     Indication: PARANOIA
     Dosage: 25 MG 2 TABLETS QHS
     Route: 048
     Dates: start: 20080402, end: 20090307
  2. FUROSEMIDE [Concomitant]
     Indication: DIURETIC THERAPY
     Dosage: 40 MG, UNK
     Route: 048
     Dates: start: 20070928, end: 20090308
  3. GLIPIZIDE [Concomitant]
     Indication: DIABETES MELLITUS
     Dosage: 10 MG, BID
     Route: 048
     Dates: start: 20080121
  4. LEXAPRO [Concomitant]
     Indication: DEPRESSION
     Dosage: 20 MG/DAY
     Route: 048
     Dates: start: 20080121
  5. LISINOPRIL [Concomitant]
     Indication: HYPERTENSION
     Dosage: 20 MG, DAILY
     Dates: start: 20070205
  6. ADVAIR HFA [Concomitant]
     Indication: CHRONIC OBSTRUCTIVE PULMONARY DISEASE
     Dosage: 1 PUFF
     Dates: start: 20080121
  7. ALBUTEROL SULFATE [Concomitant]
     Indication: CHRONIC OBSTRUCTIVE PULMONARY DISEASE
     Dosage: 1 AMP NEBULIZER 3 TIMES DAILY
     Dates: start: 20090120
  8. LORATADINE [Concomitant]
     Indication: HYPERSENSITIVITY
     Dosage: 10 MG, DAILY
     Route: 048
     Dates: start: 20071219
  9. METFORMIN [Concomitant]
     Indication: DIABETES MELLITUS
     Dosage: 1000 MG, BID
     Route: 048
     Dates: start: 20090120
  10. MUCINEX [Concomitant]
     Indication: CHRONIC OBSTRUCTIVE PULMONARY DISEASE
     Dosage: 600 MG, TID
     Route: 048
     Dates: start: 20081021
  11. CLAVULANATE POTASSIUM [Concomitant]
     Dosage: 20 MEQ, TID
     Route: 048
     Dates: start: 20080419
  12. PROVIGIL [Concomitant]
     Indication: POOR QUALITY SLEEP
     Dosage: 200 MG, UNK
     Route: 048
     Dates: start: 20080407
  13. SPIRIVA [Concomitant]
     Indication: CHRONIC OBSTRUCTIVE PULMONARY DISEASE
     Dosage: 18 UG, UNK
     Dates: start: 20060106

REACTIONS (4)
  - DEATH [None]
  - DYSPNOEA [None]
  - GENERAL PHYSICAL HEALTH DETERIORATION [None]
  - UNRESPONSIVE TO STIMULI [None]
